FAERS Safety Report 7010138-0 (Version None)
Quarter: 2010Q3

REPORT INFORMATION
  Report Type: 
  Country: None (occurrence: None)
  Receive Date: 20100923
  Receipt Date: 20100914
  Transmission Date: 20110219
  Serious: Yes (Other)
  Sender: FDA-Public Use
  Company Number: JP-PFIZER INC-2010116244

PATIENT
  Age: 77 Year
  Sex: Female
  Weight: 40 kg

DRUGS (5)
  1. NORVASC [Suspect]
     Indication: HYPERTENSION
     Dosage: 5 MG, 1X/DAY
     Route: 048
     Dates: end: 20071001
  2. NORVASC [Suspect]
     Dosage: 5 MG, 1X/DAY
     Route: 048
     Dates: start: 20080221, end: 20080313
  3. FOSAMAC [Concomitant]
     Indication: SPINAL OSTEOARTHRITIS
     Dosage: 5 MG, 1X/DAY
     Route: 048
     Dates: end: 20080313
  4. ONE-ALPHA [Concomitant]
     Indication: SPINAL OSTEOARTHRITIS
     Dosage: 1 UG, 1X/DAY
     Route: 048
     Dates: end: 20080313
  5. MYONAL [Concomitant]
     Indication: SPINAL OSTEOARTHRITIS
     Dosage: 50 MG, 3X/DAY
     Route: 048
     Dates: end: 20070416

REACTIONS (1)
  - PARKINSONISM [None]
